FAERS Safety Report 14758889 (Version 2)
Quarter: 2018Q2

REPORT INFORMATION
  Report Type: Spontaneous
  Country: BE (occurrence: BE)
  Receive Date: 20180413
  Receipt Date: 20180413
  Transmission Date: 20180711
  Serious: Yes (Life-Threatening, Hospitalization, Disabling, Other)
  Sender: FDA-Public Use
  Company Number: BE-ALEXION PHARMACEUTICALS INC-A201804355

PATIENT
  Age: 4 Year
  Sex: Female

DRUGS (2)
  1. SOLIRIS [Suspect]
     Active Substance: ECULIZUMAB
     Indication: HAEMOLYTIC URAEMIC SYNDROME
     Dosage: 600 MG, UNK
     Route: 042
  2. SOLIRIS [Suspect]
     Active Substance: ECULIZUMAB
     Indication: OFF LABEL USE

REACTIONS (18)
  - Nervous system disorder [Recovered/Resolved with Sequelae]
  - Blood urea increased [Unknown]
  - Blood creatinine increased [Unknown]
  - Haemoglobin decreased [Unknown]
  - Pyramidal tract syndrome [Recovered/Resolved with Sequelae]
  - Vomiting [Recovered/Resolved with Sequelae]
  - Cerebral infarction [Recovered/Resolved with Sequelae]
  - Central nervous system lesion [Recovered/Resolved with Sequelae]
  - Haematuria [Recovered/Resolved]
  - Pyrexia [Recovered/Resolved with Sequelae]
  - Coma [Recovered/Resolved with Sequelae]
  - Diarrhoea haemorrhagic [Recovered/Resolved with Sequelae]
  - C-reactive protein increased [Unknown]
  - Cortical laminar necrosis [Unknown]
  - Thrombocytopenia [Recovered/Resolved]
  - Blood lactate dehydrogenase increased [Unknown]
  - Off label use [Unknown]
  - Reticulocyte count increased [Unknown]
